FAERS Safety Report 4797274-4 (Version None)
Quarter: 2005Q4

REPORT INFORMATION
  Report Type: 
  Country: None (occurrence: None)
  Receive Date: 20051011
  Receipt Date: 20051011
  Transmission Date: 20060501
  Serious: Yes (Disabling, Other)
  Sender: FDA-Public Use
  Company Number: None

PATIENT
  Age: 82 Year
  Sex: Female

DRUGS (1)
  1. VOLTAREN [Suspect]
     Indication: MACULAR OEDEMA
     Dosage: 1 EYEDROP O.S. 4X

REACTIONS (4)
  - APPLICATION SITE REACTION [None]
  - BLINDNESS [None]
  - CORNEAL EROSION [None]
  - CORNEAL PERFORATION [None]
